FAERS Safety Report 15718933 (Version 1)
Quarter: 2018Q4

REPORT INFORMATION
  Report Type: Spontaneous
  Country: FR (occurrence: FR)
  Receive Date: 20181213
  Receipt Date: 20181213
  Transmission Date: 20190205
  Serious: Yes (Life-Threatening)
  Sender: FDA-Public Use
  Company Number: FR-MYLANLABS-2018M1040536

PATIENT
  Age: 52 Year
  Sex: Female

DRUGS (3)
  1. CRESEMBA [Suspect]
     Active Substance: ISAVUCONAZONIUM SULFATE
     Indication: ASPERGILLUS INFECTION
     Dosage: UNK
     Route: 042
     Dates: start: 20180228
  2. NOXAFIL [Suspect]
     Active Substance: POSACONAZOLE
     Indication: ASPERGILLUS INFECTION
     Dosage: UNK
     Route: 048
  3. CAPTOPRIL. [Suspect]
     Active Substance: CAPTOPRIL
     Indication: ASPERGILLUS INFECTION
     Dosage: UNK
     Route: 048
     Dates: start: 20180228

REACTIONS (3)
  - Arthritis [Recovering/Resolving]
  - Artery dissection [Not Recovered/Not Resolved]
  - Pancreatitis acute [Not Recovered/Not Resolved]

NARRATIVE: CASE EVENT DATE: 20180304
